FAERS Safety Report 14583526 (Version 1)
Quarter: 2018Q1

REPORT INFORMATION
  Report Type: Report from Study
  Country: US (occurrence: US)
  Receive Date: 20180228
  Receipt Date: 20180228
  Transmission Date: 20180509
  Serious: Yes (Hospitalization)
  Sender: FDA-Public Use
  Company Number: US-BAYER-2017-210340

PATIENT
  Age: 74 Year
  Sex: Male

DRUGS (6)
  1. NEXAVAR [Interacting]
     Active Substance: SORAFENIB
     Indication: HEPATOCELLULAR CARCINOMA
     Dosage: 600 MG DAILY DOSE (200 MG IN MORNING AND 400 MG IN EVENING)
     Route: 048
     Dates: start: 201710, end: 201710
  2. NEXAVAR [Interacting]
     Active Substance: SORAFENIB
     Indication: HEPATOCELLULAR CARCINOMA
     Dosage: 400 MG, BID
     Route: 048
     Dates: start: 201710, end: 20171027
  3. PLAVIX [Interacting]
     Active Substance: CLOPIDOGREL BISULFATE
     Dosage: UNK
     Dates: end: 201710
  4. COUMADIN [Concomitant]
     Active Substance: WARFARIN SODIUM
     Dosage: UNK
     Dates: end: 201710
  5. COUMADIN [Concomitant]
     Active Substance: WARFARIN SODIUM
     Dosage: UNK
     Dates: start: 201711
  6. NEXAVAR [Suspect]
     Active Substance: SORAFENIB
     Indication: HEPATOCELLULAR CARCINOMA
     Dosage: 200 MG, BID
     Route: 048
     Dates: start: 20171005, end: 201710

REACTIONS (5)
  - Drug intolerance [None]
  - Off label use [None]
  - Drug interaction [None]
  - Haemoptysis [Recovered/Resolved]
  - Platelet count decreased [None]

NARRATIVE: CASE EVENT DATE: 20171027
